FAERS Safety Report 19273634 (Version 1)
Quarter: 2021Q2

REPORT INFORMATION
  Report Type: Spontaneous
  Country: US (occurrence: US)
  Receive Date: 20210518
  Receipt Date: 20210518
  Transmission Date: 20210717
  Serious: Yes (Other)
  Sender: FDA-Public Use
  Company Number: None

PATIENT
  Age: 65 Year
  Sex: Female

DRUGS (15)
  1. TYLENOL [Concomitant]
     Active Substance: ACETAMINOPHEN
  2. LOSARTAN. [Concomitant]
     Active Substance: LOSARTAN
  3. COSOPT OPHT DROP [Concomitant]
  4. AMBRISENTAN 5MG TABLETS 30/BO: 5MG [Suspect]
     Active Substance: AMBRISENTAN
     Indication: PULMONARY HYPERTENSION
     Route: 048
     Dates: start: 20210423, end: 20210425
  5. FUROSEMIDE. [Concomitant]
     Active Substance: FUROSEMIDE
  6. POTASSIUM CHLORIDE. [Concomitant]
     Active Substance: POTASSIUM CHLORIDE
  7. ATORVASTATIN [Concomitant]
     Active Substance: ATORVASTATIN
  8. XALATAN OPHT DROP [Concomitant]
  9. SILDENAFIL. [Concomitant]
     Active Substance: SILDENAFIL
  10. ACARBOSE. [Concomitant]
     Active Substance: ACARBOSE
  11. HUMULIN N [Concomitant]
     Active Substance: INSULIN HUMAN
  12. FOSAMAX [Concomitant]
     Active Substance: ALENDRONATE SODIUM
  13. TRAMADOL. [Concomitant]
     Active Substance: TRAMADOL
  14. METFORMIN [Concomitant]
     Active Substance: METFORMIN HYDROCHLORIDE
  15. VITAMIN D2 [Concomitant]
     Active Substance: ERGOCALCIFEROL

REACTIONS (1)
  - Hospitalisation [None]

NARRATIVE: CASE EVENT DATE: 20210427
